FAERS Safety Report 24840540 (Version 3)
Quarter: 2025Q3

REPORT INFORMATION
  Report Type: Spontaneous
  Country: RU (occurrence: RU)
  Receive Date: 20250114
  Receipt Date: 20250802
  Transmission Date: 20251021
  Serious: Yes (Other)
  Sender: ALEXION PHARMACEUTICALS
  Company Number: RU-ASTRAZENECA-202501RUS006709RU

PATIENT

DRUGS (1)
  1. PULMICORT TURBUHALER [Suspect]
     Active Substance: BUDESONIDE
     Indication: Cough

REACTIONS (4)
  - Vomiting [Unknown]
  - Drug ineffective [Unknown]
  - Intentional product misuse to child [Unknown]
  - Pharyngeal erythema [Unknown]
